FAERS Safety Report 6209680-1 (Version None)
Quarter: 2009Q2

REPORT INFORMATION
  Report Type: 
  Country: None (occurrence: None)
  Receive Date: 20090529
  Receipt Date: 20090529
  Transmission Date: 20091009
  Serious: Yes (Other)
  Sender: FDA-Public Use
  Company Number: None

PATIENT
  Age: 38 Year
  Sex: Female
  Weight: 70.7611 kg

DRUGS (2)
  1. FLUOXETINE [Suspect]
     Dosage: 20 MG Q DAY ORAL 40 MG Q DAY ORAL
     Route: 048
     Dates: start: 20090225, end: 20090512
  2. FLUOXETINE [Suspect]
     Dosage: 20 MG Q DAY ORAL 40 MG Q DAY ORAL
     Route: 048
     Dates: start: 20090522

REACTIONS (6)
  - DISEASE RECURRENCE [None]
  - FEELING OF DESPAIR [None]
  - IRRITABILITY [None]
  - PRODUCT SUBSTITUTION ISSUE [None]
  - SUICIDAL IDEATION [None]
  - TEARFULNESS [None]
